FAERS Safety Report 8618481 (Version 2)
Quarter: 2013Q2

REPORT INFORMATION
  Report Type: Spontaneous
  Country: US (occurrence: US)
  Receive Date: 20120618
  Receipt Date: 20130620
  Transmission Date: 20140414
  Serious: No
  Sender: FDA-Public Use
  Company Number: US-ASTRAZENECA-2012SE36291

PATIENT
  Age: 48 Year
  Sex: Female

DRUGS (3)
  1. NEXIUM [Suspect]
     Indication: DYSPEPSIA
     Route: 048
     Dates: start: 19981122, end: 19991020
  2. NEXIUM [Suspect]
     Indication: DYSPEPSIA
     Dosage: AS NEEDED
     Route: 048
     Dates: start: 19981122, end: 19991020
  3. OYST CAL D [Concomitant]
     Indication: OSTEOPOROSIS
     Dosage: 500,1500MG

REACTIONS (9)
  - Osteoporosis [Unknown]
  - Bone density decreased [Unknown]
  - Multiple fractures [Unknown]
  - Bone disorder [Unknown]
  - Back pain [Unknown]
  - Bone pain [Unknown]
  - Calcium deficiency [Unknown]
  - Vitamin D deficiency [Unknown]
  - Arthralgia [Unknown]
